FAERS Safety Report 10045807 (Version 1)
Quarter: 2014Q1

REPORT INFORMATION
  Report Type: Spontaneous
  Country: RU (occurrence: RU)
  Receive Date: 20140328
  Receipt Date: 20140328
  Transmission Date: 20141002
  Serious: Yes (Other)
  Sender: FDA-Public Use
  Company Number: RU-ASTRAZENECA-2014SE21434

PATIENT
  Sex: 0

DRUGS (1)
  1. PULMICORT [Suspect]
     Indication: BRONCHOPULMONARY DYSPLASIA
     Route: 055

REACTIONS (1)
  - Off label use [Unknown]
